FAERS Safety Report 4846453-6 (Version None)
Quarter: 2005Q4

REPORT INFORMATION
  Report Type: 
  Country: None (occurrence: None)
  Receive Date: 20051202
  Receipt Date: 20051119
  Transmission Date: 20060501
  Serious: Yes (Hospitalization, Other)
  Sender: FDA-Public Use
  Company Number: 2005149627

PATIENT
  Age: 73 Year
  Sex: Male

DRUGS (8)
  1. LYRICA [Suspect]
     Indication: POLYNEUROPATHY
     Dosage: 150 MG (50 MG, 3 IN 1 D), ORAL
     Route: 048
     Dates: start: 20051006, end: 20051010
  2. WARFARIN (WARFARIN) [Concomitant]
  3. METOPROLOL (METOPROLOL) [Concomitant]
  4. SYNTHROID [Concomitant]
  5. IMURAN [Concomitant]
  6. PREVACID [Concomitant]
  7. PREDNISONE [Concomitant]
  8. LANOXIN [Concomitant]

REACTIONS (6)
  - CONFUSIONAL STATE [None]
  - FAECAL INCONTINENCE [None]
  - MENTAL IMPAIRMENT [None]
  - RHABDOMYOLYSIS [None]
  - STUPOR [None]
  - URINARY INCONTINENCE [None]
